FAERS Safety Report 9601268 (Version 1)
Quarter: 2013Q4

REPORT INFORMATION
  Report Type: Spontaneous
  Country: MX (occurrence: MX)
  Receive Date: 20131006
  Receipt Date: 20131006
  Transmission Date: 20140711
  Serious: Yes (Other)
  Sender: FDA-Public Use
  Company Number: PHHY2013MX111093

PATIENT
  Age: 75 Year
  Sex: Male

DRUGS (6)
  1. TEGRETOL [Suspect]
     Indication: RENAL DISORDER
     Dosage: 1 DF, DAILY
     Route: 048
     Dates: start: 201308, end: 201308
  2. TEGRETOL [Suspect]
     Indication: OFF LABEL USE
  3. ATORVASTATIN [Concomitant]
     Dosage: UNK UKN, UNK
  4. CALCITRIOL [Concomitant]
     Dosage: UNK UKN, UNK
  5. ADALAT [Concomitant]
     Dosage: UNK UKN, UNK
  6. ZYLOPRIM [Concomitant]
     Dosage: UNK UKN, UNK

REACTIONS (3)
  - Mouth haemorrhage [Recovered/Resolved]
  - Sleep talking [Recovered/Resolved]
  - Nervousness [Recovered/Resolved]
